FAERS Safety Report 8513966 (Version 2)
Quarter: 2012Q4

REPORT INFORMATION
  Report Type: 
  Country: KW (occurrence: KW)
  Receive Date: 20120416
  Receipt Date: 20120905
  Transmission Date: 20130627
  Serious: Yes (Hospitalization)
  Sender: FDA-Public Use
  Company Number: KW-ROCHE-1057807

PATIENT

DRUGS (1)
  1. METHOXY POLYETHYLENE GLYCOL-EPOETIN BETA [Suspect]
     Indication: PRODUCT USED FOR UNKNOWN INDICATION
     Route: 065

REACTIONS (1)
  - Cerebrovascular accident [Not Recovered/Not Resolved]
